FAERS Safety Report 4919375-X (Version None)
Quarter: 2006Q1

REPORT INFORMATION
  Report Type: 
  Country: None (occurrence: None)
  Receive Date: 20060222
  Receipt Date: 20050609
  Transmission Date: 20060701
  Serious: Yes (Hospitalization, Disabling)
  Sender: FDA-Public Use
  Company Number: US-MERCK-0506USA01482

PATIENT
  Age: 55 Year
  Sex: Female
  Weight: 75 kg

DRUGS (7)
  1. VIOXX [Suspect]
     Indication: ARTHRITIS
     Route: 048
     Dates: start: 20020401, end: 20040901
  2. PREMPRO [Concomitant]
     Route: 065
  3. LEVOXYL [Concomitant]
     Route: 065
  4. SALAGEN [Concomitant]
     Route: 065
  5. GUAIFENESIN [Concomitant]
     Route: 065
  6. FOLIC ACID [Concomitant]
     Route: 065
  7. FLEXERIL [Concomitant]
     Route: 048

REACTIONS (3)
  - HYPERTENSION [None]
  - THROMBOSIS [None]
  - THROMBOTIC STROKE [None]
